FAERS Safety Report 8222141-3 (Version None)
Quarter: 2012Q1

REPORT INFORMATION
  Report Type: 
  Country: None (occurrence: None)
  Receive Date: 20120320
  Receipt Date: 20120316
  Transmission Date: 20120608
  Serious: Yes (Hospitalization)
  Sender: FDA-Public Use
  Company Number: US-B.I. PHARMACEUTICALS,INC./RIDGEFIELD-2012-BP-01464BP

PATIENT
  Sex: Female
  Weight: 72.57 kg

DRUGS (13)
  1. LISINOPRIL [Concomitant]
     Indication: BLOOD PRESSURE
  2. COUMADIN [Concomitant]
     Indication: DEEP VEIN THROMBOSIS
     Dosage: 2.5 MG
     Route: 048
  3. SPIRIVA [Suspect]
     Indication: CHRONIC OBSTRUCTIVE PULMONARY DISEASE
     Dosage: 18 MCG
     Route: 055
     Dates: start: 20111010
  4. SIMVASTATIN [Concomitant]
     Indication: BLOOD CHOLESTEROL INCREASED
     Dosage: 20 MG
     Route: 048
  5. OMEPRAZOLE [Concomitant]
     Indication: GASTROOESOPHAGEAL REFLUX DISEASE
  6. ASPIRIN [Concomitant]
     Indication: DEEP VEIN THROMBOSIS
     Dosage: 81 MG
     Route: 048
  7. LASIX [Concomitant]
     Indication: OEDEMA
  8. LISINOPRIL [Concomitant]
     Indication: HYPERTENSION
     Route: 048
  9. METOPROLOL SUCCINATE [Concomitant]
     Indication: HYPERTENSION
     Dosage: 100 MG
     Route: 048
  10. ZOCOR [Concomitant]
     Indication: BLOOD CHOLESTEROL INCREASED
  11. PLAVIX [Concomitant]
     Indication: DEEP VEIN THROMBOSIS
     Dosage: 75 MG
     Route: 048
  12. LASIX [Concomitant]
     Indication: HYPERTENSION
     Dosage: 40 MG
     Route: 048
  13. VERAPAMIL [Concomitant]
     Indication: BLOOD PRESSURE

REACTIONS (4)
  - ABDOMINAL PAIN [None]
  - CONTUSION [None]
  - HAEMORRHAGE [None]
  - CORONARY ARTERY OCCLUSION [None]
